FAERS Safety Report 11151240 (Version 2)
Quarter: 2015Q3

REPORT INFORMATION
  Report Type: Spontaneous
  Country: US (occurrence: US)
  Receive Date: 20150601
  Receipt Date: 20150713
  Transmission Date: 20151125
  Serious: No
  Sender: FDA-Public Use
  Company Number: US-ASTRAZENECA-2015SE28271

PATIENT
  Age: 72 Year
  Sex: Female
  Weight: 77 kg

DRUGS (17)
  1. EXEMESTANE. [Suspect]
     Active Substance: EXEMESTANE
     Indication: BREAST CANCER
     Route: 065
     Dates: start: 201102
  2. EXEMESTANE. [Suspect]
     Active Substance: EXEMESTANE
     Indication: MASTECTOMY
     Route: 065
     Dates: start: 201103
  3. CLINDAMYCIN [Concomitant]
     Active Substance: CLINDAMYCIN\CLINDAMYCIN PHOSPHATE
     Indication: TOOTH INFECTION
     Dosage: TEN DAYS ONLY.
  4. EXEMESTANE. [Suspect]
     Active Substance: EXEMESTANE
     Indication: MASTECTOMY
     Route: 065
     Dates: start: 201102
  5. CALCIUM [Concomitant]
     Active Substance: CALCIUM
  6. TRIAMTERENE. [Concomitant]
     Active Substance: TRIAMTERENE
     Indication: HYPERTENSION
     Dosage: 37.5/25MG, ONE CAPSULE BY MOUTH A DAY
  7. PROLIA [Concomitant]
     Active Substance: DENOSUMAB
     Indication: BONE DISORDER
     Dosage: EVERY SIX MONTHS
  8. ALEVE [Suspect]
     Active Substance: NAPROXEN SODIUM
     Indication: PAIN
     Route: 065
  9. GLUCOSAMIN [Concomitant]
  10. CHONDRITIN [Concomitant]
  11. MULTIVITAMIN [Concomitant]
     Active Substance: VITAMINS
  12. VITAMIN D [Concomitant]
     Active Substance: CHOLECALCIFEROL
  13. VITAMINS [Concomitant]
     Active Substance: VITAMINS
  14. ARIMIDEX [Suspect]
     Active Substance: ANASTROZOLE
     Route: 048
     Dates: start: 201102
  15. EXEMESTANE. [Suspect]
     Active Substance: EXEMESTANE
     Indication: BREAST CANCER
     Route: 065
     Dates: start: 201103
  16. WATERPILL (TRIAMTRIN) [Concomitant]
     Indication: BLOOD PRESSURE MANAGEMENT
  17. VITAMIN C [Concomitant]
     Active Substance: ASCORBIC ACID

REACTIONS (15)
  - Tooth infection [Unknown]
  - Memory impairment [Not Recovered/Not Resolved]
  - Pain [Recovered/Resolved]
  - Fall [Unknown]
  - Back pain [Unknown]
  - Gait disturbance [Unknown]
  - Body height decreased [Unknown]
  - Hypersomnia [Not Recovered/Not Resolved]
  - Osteoporosis [Unknown]
  - Device related infection [Not Recovered/Not Resolved]
  - Arthralgia [Unknown]
  - Intentional product misuse [Unknown]
  - Malaise [Recovered/Resolved]
  - Bone loss [Not Recovered/Not Resolved]
  - Head injury [Unknown]

NARRATIVE: CASE EVENT DATE: 201102
